FAERS Safety Report 14702081 (Version 2)
Quarter: 2018Q2

REPORT INFORMATION
  Report Type: Spontaneous
  Country: US (occurrence: US)
  Receive Date: 20180331
  Receipt Date: 20180409
  Transmission Date: 20180711
  Serious: No
  Sender: FDA-Public Use
  Company Number: US-JNJFOC-20180323866

PATIENT
  Weight: 62 kg

DRUGS (1)
  1. SIMPONI [Suspect]
     Active Substance: GOLIMUMAB
     Indication: CROHN^S DISEASE
     Route: 058

REACTIONS (4)
  - Off label use [Unknown]
  - Drug ineffective [Unknown]
  - Adverse drug reaction [Unknown]
  - Product use in unapproved indication [Unknown]
